FAERS Safety Report 9718837 (Version 1)
Quarter: 2013Q4

REPORT INFORMATION
  Report Type: Spontaneous
  Country: GB (occurrence: GB)
  Receive Date: 20131127
  Receipt Date: 20131127
  Transmission Date: 20140711
  Serious: Yes (Death)
  Sender: FDA-Public Use
  Company Number: GB-ACTAVIS-2013-21807

PATIENT
  Age: 26 Year
  Sex: Male
  Weight: 56 kg

DRUGS (1)
  1. TRAMADOL (UNKNOWN) [Suspect]
     Indication: PAIN
     Dosage: 200 MG, UNKNOWN
     Route: 048
     Dates: start: 20131101, end: 20131106

REACTIONS (1)
  - Sickle cell anaemia [Fatal]
